FAERS Safety Report 4691077-7 (Version None)
Quarter: 2005Q2

REPORT INFORMATION
  Report Type: 
  Country: None (occurrence: None)
  Receive Date: 20050610
  Receipt Date: 20050531
  Transmission Date: 20051028
  Serious: Yes (Other)
  Sender: FDA-Public Use
  Company Number: 2005084402

PATIENT
  Age: 20 Year
  Sex: Female

DRUGS (2)
  1. ZOLOFT [Suspect]
     Indication: DEPRESSION
     Dates: start: 20050501, end: 20050501
  2. VALPROIC ACID [Concomitant]

REACTIONS (4)
  - CONTUSION [None]
  - EPILEPSY [None]
  - GRAND MAL CONVULSION [None]
  - HEADACHE [None]
